FAERS Safety Report 9050727 (Version 1)
Quarter: 2013Q1

REPORT INFORMATION
  Report Type: Spontaneous
  Country: CO (occurrence: CO)
  Receive Date: 20130205
  Receipt Date: 20130205
  Transmission Date: 20140127
  Serious: Yes (Other)
  Sender: FDA-Public Use
  Company Number: CO-JNJFOC-20130114225

PATIENT
  Age: 33 None
  Sex: Female

DRUGS (2)
  1. REMICADE [Suspect]
     Indication: RHEUMATOID ARTHRITIS
     Route: 042
     Dates: start: 20130124
  2. REMICADE [Suspect]
     Indication: RHEUMATOID ARTHRITIS
     Route: 042
     Dates: start: 20130104

REACTIONS (11)
  - Hypertension [Recovered/Resolved]
  - Oedema peripheral [Unknown]
  - Respiratory distress [Recovered/Resolved]
  - Infusion related reaction [Recovered/Resolved]
  - Rash [Recovered/Resolved]
  - Malaise [Unknown]
  - Pyrexia [Unknown]
  - Chest pain [Recovered/Resolved]
  - Erythema [Recovered/Resolved]
  - Rhinorrhoea [Recovered/Resolved]
  - Pruritus [Recovered/Resolved]
